FAERS Safety Report 5396914-9 (Version None)
Quarter: 2007Q3

REPORT INFORMATION
  Report Type: 
  Country: None (occurrence: None)
  Receive Date: 20070725
  Receipt Date: 20070716
  Transmission Date: 20080115
  Serious: Yes (Disabling)
  Sender: FDA-Public Use
  Company Number: DK-ASTRAZENECA-2007SE04022

PATIENT
  Age: 15296 Day
  Sex: Female

DRUGS (4)
  1. MARCAINE [Suspect]
     Indication: EPIDURAL ANAESTHESIA
     Dosage: MIXED WITH SUFENTA
     Route: 008
     Dates: start: 20021126, end: 20021126
  2. SUFENTA [Suspect]
     Indication: EPIDURAL ANAESTHESIA
     Dosage: MIXED WITH MARCAIN
     Route: 008
     Dates: start: 20021126, end: 20021126
  3. LIDOKAIN SAD [Concomitant]
     Indication: ANAESTHESIA
     Dosage: LOCAL ANAESTHESIA
     Route: 042
     Dates: start: 20021126, end: 20021126
  4. LIDOKAIN SAD [Concomitant]
     Dosage: TEST SOLUTION
     Route: 042
     Dates: start: 20021126, end: 20021126

REACTIONS (4)
  - HEADACHE [None]
  - PAIN [None]
  - SUICIDAL IDEATION [None]
  - VOMITING [None]
